FAERS Safety Report 11030508 (Version 3)
Quarter: 2015Q2

REPORT INFORMATION
  Report Type: Spontaneous
  Country: CL (occurrence: CL)
  Receive Date: 20150415
  Receipt Date: 20150430
  Transmission Date: 20150821
  Serious: Yes (Life-Threatening, Hospitalization)
  Sender: FDA-Public Use
  Company Number: CL-PFIZER INC-2015128871

PATIENT
  Age: 27 Year
  Sex: Female
  Weight: 110 kg

DRUGS (6)
  1. ZELDOX [Suspect]
     Active Substance: ZIPRASIDONE
     Dosage: 80 MG, 2X/DAY (TWO OF 40 MG IN THE MORNING AND TWO OF 40 MG AT NIGHT)
     Route: 048
     Dates: start: 20150417
  2. CLONAZEPAM. [Concomitant]
     Active Substance: CLONAZEPAM
     Indication: SCHIZOPHRENIA, PARANOID TYPE
     Dosage: 1.5 MG MORNING AND 2 MG AFTERNOON
     Route: 048
     Dates: start: 2009
  3. HALOPERIDOL. [Concomitant]
     Active Substance: HALOPERIDOL
     Indication: SCHIZOPHRENIA, PARANOID TYPE
     Dosage: 1 MG MORNING  AND 1MG AFTERNOON
     Route: 048
     Dates: start: 2009
  4. ZELDOX [Suspect]
     Active Substance: ZIPRASIDONE
     Indication: SCHIZOPHRENIA, PARANOID TYPE
     Dosage: 80 MG, 2X/DAY (TWO OF 40 MG IN THE MORNING AND TWO OF 40 MG AT NIGHT)
     Route: 048
     Dates: start: 2011, end: 20150411
  5. ZELDOX [Suspect]
     Active Substance: ZIPRASIDONE
     Dosage: 10480 MG, SINGLE
     Route: 048
     Dates: start: 20150413, end: 20150413
  6. RANITIDINE [Concomitant]
     Active Substance: RANITIDINE\RANITIDINE HYDROCHLORIDE
     Indication: DYSPEPSIA
     Dosage: 300 MG, DAILY
     Route: 048
     Dates: start: 2013

REACTIONS (5)
  - Dizziness [Recovered/Resolved]
  - Suicide attempt [Recovered/Resolved]
  - Arrhythmia [Recovered/Resolved]
  - Loss of consciousness [Recovered/Resolved]
  - Overdose [Recovered/Resolved]

NARRATIVE: CASE EVENT DATE: 20150413
